FAERS Safety Report 22952079 (Version 3)
Quarter: 2023Q4

REPORT INFORMATION
  Report Type: Report from Study
  Country: US (occurrence: US)
  Receive Date: 20230918
  Receipt Date: 20231106
  Transmission Date: 20240109
  Serious: Yes (Hospitalization)
  Sender: FDA-Public Use
  Company Number: US-GILEAD-2023-0643374

PATIENT
  Age: 81 Year
  Sex: Female

DRUGS (2)
  1. AZTREONAM LYSINE [Suspect]
     Active Substance: AZTREONAM LYSINE
     Indication: Cystic fibrosis
     Dosage: 75 MG, TID (FOR 28 ON AND 28 OFF)
     Route: 055
     Dates: start: 20230509
  2. AZTREONAM LYSINE [Suspect]
     Active Substance: AZTREONAM LYSINE
     Dosage: INHALE THE CONTENTS OF 1 VIAL 3 TIMES DAILY
     Route: 055
     Dates: start: 20230509

REACTIONS (8)
  - Influenza [Not Recovered/Not Resolved]
  - Migraine [Unknown]
  - Blood glucose increased [Unknown]
  - Hypertension [Unknown]
  - Pyrexia [Not Recovered/Not Resolved]
  - Malaise [Not Recovered/Not Resolved]
  - Chills [Not Recovered/Not Resolved]
  - Nausea [Not Recovered/Not Resolved]

NARRATIVE: CASE EVENT DATE: 20231031
